FAERS Safety Report 6220114-3 (Version None)
Quarter: 2009Q2

REPORT INFORMATION
  Report Type: 
  Country: None (occurrence: None)
  Receive Date: 20090609
  Receipt Date: 20090601
  Transmission Date: 20091009
  Serious: Yes (Hospitalization, Other)
  Sender: FDA-Public Use
  Company Number: JP-B.I. PHARMACEUTICALS,INC./RIDGEFIELD-2009-BP-06911YA

PATIENT
  Sex: Male
  Weight: 72.3 kg

DRUGS (5)
  1. HARNAL (TAMSULOSIN) ORODISPERSABLE CR [Suspect]
     Indication: BENIGN PROSTATIC HYPERPLASIA
     Dosage: .2MG
     Route: 048
     Dates: start: 20090318
  2. CELECOXIB [Suspect]
     Indication: OSTEOARTHRITIS
     Dosage: 200MG
     Route: 048
     Dates: start: 20090422
  3. MUCOSTA (REBAMIPIDE) [Suspect]
     Indication: GASTRITIS PROPHYLAXIS
     Dosage: 200MG
     Route: 048
     Dates: start: 20090422
  4. ARTZ (HYALURONATE SODIUM) [Suspect]
     Indication: OSTEOARTHRITIS
     Route: 013
     Dates: start: 20090422
  5. SOLIFENACIN BLINDED (CODE NOT BROKEN) [Suspect]
     Indication: HYPERTONIC BLADDER
     Route: 065
     Dates: start: 20090520, end: 20090601

REACTIONS (1)
  - CHRONIC HEPATITIS [None]
